FAERS Safety Report 26202573 (Version 1)
Quarter: 2025Q4

REPORT INFORMATION
  Report Type: Spontaneous
  Country: US (occurrence: US)
  Receive Date: 20251226
  Receipt Date: 20251226
  Transmission Date: 20260118
  Serious: No
  Sender: ABBVIE
  Company Number: US-ABBVIE-6605459

PATIENT
  Sex: Female

DRUGS (1)
  1. BOTOX [Suspect]
     Active Substance: ONABOTULINUMTOXINA
     Indication: Migraine without aura
     Dosage: TIME INTERVAL: AS NECESSARY: FREQUENCY: EVERY 12 WEEKS?155 UNIT?FORM STRENGTH: 200 UNIT
     Route: 065
     Dates: start: 2021, end: 2021

REACTIONS (3)
  - Pain [Unknown]
  - Migraine [Unknown]
  - Pain [Unknown]
